FAERS Safety Report 12922579 (Version 1)
Quarter: 2016Q4

REPORT INFORMATION
  Report Type: Report from Study
  Country: BR (occurrence: BR)
  Receive Date: 20161108
  Receipt Date: 20161108
  Transmission Date: 20170207
  Serious: Yes (Other)
  Sender: FDA-Public Use
  Company Number: PHHY2016BR152363

PATIENT
  Sex: Female
  Weight: 69 kg

DRUGS (7)
  1. DIOVAN [Suspect]
     Active Substance: VALSARTAN
     Indication: HYPERTENSION
     Dosage: 160 MG, BID (ONE TABLET IN THE MORNING AND ONE TABLET IN THE AFTERNOON)
     Route: 048
  2. ATENOLOL. [Concomitant]
     Active Substance: ATENOLOL
     Indication: PRODUCT USED FOR UNKNOWN INDICATION
     Dosage: 25 MG
     Route: 065
  3. PANTOCAL [Concomitant]
     Indication: PRODUCT USED FOR UNKNOWN INDICATION
     Route: 065
  4. OMEPRAZOLE. [Concomitant]
     Active Substance: OMEPRAZOLE
     Indication: PRODUCT USED FOR UNKNOWN INDICATION
     Dosage: 40 MG,
     Route: 065
  5. DIOVAN [Suspect]
     Active Substance: VALSARTAN
     Indication: ANGINA PECTORIS
     Dosage: 160 MG, BID (ONE IN THE MORNING AND ONE AT EVENING)
     Route: 048
  6. FRONTAL [Suspect]
     Active Substance: ALPRAZOLAM
     Indication: PRODUCT USED FOR UNKNOWN INDICATION
     Dosage: 0.5 DF, UNK
     Route: 065
  7. CLOPIDOGREL BISULFATE. [Concomitant]
     Active Substance: CLOPIDOGREL BISULFATE
     Indication: PRODUCT USED FOR UNKNOWN INDICATION
     Dosage: 75 MG,
     Route: 065

REACTIONS (19)
  - Joint swelling [Recovering/Resolving]
  - Labyrinthitis [Unknown]
  - Cataract [Unknown]
  - Intervertebral disc protrusion [Recovering/Resolving]
  - Blood pressure fluctuation [Unknown]
  - Glaucoma [Unknown]
  - Blood pressure increased [Unknown]
  - Osteoarthritis [Recovering/Resolving]
  - Chondropathy [Recovering/Resolving]
  - Product use issue [Unknown]
  - Visual impairment [Unknown]
  - Cardiac disorder [Unknown]
  - Inappropriate schedule of drug administration [Unknown]
  - Abdominal discomfort [Unknown]
  - Vision blurred [Unknown]
  - Varicose vein [Unknown]
  - Weight decreased [Unknown]
  - Blood pressure decreased [Unknown]
  - Cardiovascular disorder [Unknown]
